FAERS Safety Report 7970267-1 (Version None)
Quarter: 2011Q4

REPORT INFORMATION
  Report Type: 
  Country: None (occurrence: None)
  Receive Date: 20111212
  Receipt Date: 20111212
  Transmission Date: 20120403
  Serious: Yes (Death, Hospitalization, Other)
  Sender: FDA-Public Use
  Company Number: BR-ABBOTT-11P-020-0706788-00

PATIENT
  Sex: Female
  Weight: 60 kg

DRUGS (1)
  1. HUMIRA [Suspect]
     Indication: RHEUMATOID ARTHRITIS
     Route: 058
     Dates: start: 20070101

REACTIONS (7)
  - GASTROINTESTINAL INFECTION [None]
  - INFECTION [None]
  - SEPSIS [None]
  - IMMUNODEFICIENCY [None]
  - BLOOD PRESSURE DECREASED [None]
  - PYREXIA [None]
  - DIARRHOEA [None]
